FAERS Safety Report 6990946 (Version 2)
Quarter: 2013Q1

REPORT INFORMATION
  Report Type: Spontaneous
  Country: GB (occurrence: None)
  Receive Date: 20090430
  Receipt Date: 20130103
  Transmission Date: 20140127
  Serious: Yes (Life-Threatening, Hospitalization, Disabling, Other)
  Sender: FDA-Public Use
  Company Number: 2009AP001593

PATIENT
  Age: 58 Year
  Sex: Male

DRUGS (9)
  1. CLARITHROMYCIN [Suspect]
     Indication: RESPIRATORY TRACT INFECTION
     Route: 048
     Dates: start: 200812, end: 200812
  2. SIMVASTATIN [Suspect]
     Indication: BLOOD CHOLESTEROL INCREASED
     Route: 048
     Dates: end: 200901
  3. VITAMIN D /00107901/ (ERGOCALCIFEROL) [Concomitant]
  4. ALLOPURINOL [Concomitant]
  5. ACETYLSALICYLIC ACID (ACETYLSALICYLIC ACID) [Concomitant]
  6. CICLOSPORIN (CICLOSPORIN) [Concomitant]
  7. INSULIN (INSULIN) [Concomitant]
  8. IRBESARTAN [Concomitant]
  9. SILDENAFIL CITRATE [Concomitant]

REACTIONS (5)
  - Blood creatine phosphokinase increased [None]
  - Metabolic acidosis [None]
  - Paralysis [None]
  - Blood potassium increased [None]
  - Myopathy [None]
